FAERS Safety Report 18588054 (Version 1)
Quarter: 2020Q4

REPORT INFORMATION
  Report Type: Spontaneous
  Country: US (occurrence: US)
  Receive Date: 20201207
  Receipt Date: 20201207
  Transmission Date: 20210114
  Serious: Yes (Hospitalization)
  Sender: FDA-Public Use
  Company Number: US-ANIPHARMA-2020-US-023607

PATIENT
  Age: 41 Year
  Sex: Male

DRUGS (6)
  1. TACROLIMUS. [Suspect]
     Active Substance: TACROLIMUS
     Indication: IMMUNOSUPPRESSION
     Dosage: 1 MG TWICE DAILY
  2. MYCOPHENOLATE [Concomitant]
     Active Substance: MYCOPHENOLIC ACID
     Dosage: 360 MG TWICE DAILY
  3. CIPROFLOXACIN (NON-SPECIFIC) [Suspect]
     Active Substance: CIPROFLOXACIN
     Indication: SINUSITIS
  4. LAMOTRIGINE. [Concomitant]
     Active Substance: LAMOTRIGINE
     Dosage: 100 MG
  5. ESCITALOPRAM [Concomitant]
     Active Substance: ESCITALOPRAM OXALATE
     Dosage: 20 MG
  6. ALPRAZOLAM. [Concomitant]
     Active Substance: ALPRAZOLAM
     Dosage: 1 MG TWICE DAILY AS NEEDED

REACTIONS (2)
  - Catatonia [Recovered/Resolved]
  - Drug interaction [Recovered/Resolved]
